FAERS Safety Report 5787626-8 (Version None)
Quarter: 2008Q2

REPORT INFORMATION
  Report Type: 
  Country: None (occurrence: None)
  Receive Date: 20080625
  Receipt Date: 20071105
  Transmission Date: 20081010
  Serious: No
  Sender: FDA-Public Use
  Company Number: US-ASTRAZENECA-2007UW25580

PATIENT
  Age: 4 Year
  Sex: Female
  Weight: 21.8 kg

DRUGS (5)
  1. PULMICORT-100 [Suspect]
     Indication: ASTHMA
     Route: 055
  2. ALBUTEROL [Concomitant]
  3. SINGULAIR [Concomitant]
  4. CLARITIN [Concomitant]
  5. PREDNISONE [Concomitant]

REACTIONS (3)
  - HEADACHE [None]
  - PAIN IN EXTREMITY [None]
  - RHINORRHOEA [None]
